FAERS Safety Report 8508150-5 (Version None)
Quarter: 2012Q2

REPORT INFORMATION
  Report Type: 
  Country: None (occurrence: None)
  Receive Date: 20120405
  Receipt Date: 20090615
  Transmission Date: 20120825
  Serious: Yes (Other)
  Sender: FDA-Public Use
  Company Number: PHEH2009US03755

PATIENT
  Age: 79 Year
  Sex: Female

DRUGS (4)
  1. PAXIL [Concomitant]
  2. ASPIRIN [Concomitant]
  3. NAPROXEN (ALEVE) [Concomitant]
  4. RECLAST [Suspect]
     Indication: OSTEOPOROSIS
     Dosage: IV INFUSION
     Route: 042
     Dates: start: 20090301, end: 20090301

REACTIONS (5)
  - PAIN IN EXTREMITY [None]
  - ATRIAL FIBRILLATION [None]
  - ARTHRALGIA [None]
  - FEELING JITTERY [None]
  - NERVOUSNESS [None]
